FAERS Safety Report 6998561-1 (Version None)
Quarter: 2010Q3

REPORT INFORMATION
  Report Type: 
  Country: None (occurrence: None)
  Receive Date: 20100920
  Receipt Date: 20081218
  Transmission Date: 20110219
  Serious: No
  Sender: FDA-Public Use
  Company Number: US-ASTRAZENECA-2008UW28381

PATIENT
  Age: 14 Year
  Sex: Male

DRUGS (4)
  1. SEROQUEL [Suspect]
     Route: 048
     Dates: end: 20081101
  2. SEROQUEL [Suspect]
     Route: 048
     Dates: start: 20081108, end: 20081110
  3. SEROQUEL [Suspect]
     Route: 048
     Dates: start: 20081101
  4. LAMICTAL [Concomitant]

REACTIONS (3)
  - CHEST PAIN [None]
  - MUSCLE TWITCHING [None]
  - RASH [None]
